FAERS Safety Report 17711609 (Version 1)
Quarter: 2020Q2

REPORT INFORMATION
  Report Type: Spontaneous
  Country: US (occurrence: US)
  Receive Date: 20200425
  Receipt Date: 20200425
  Transmission Date: 20200714
  Serious: Yes (Death)
  Sender: FDA-Public Use
  Company Number: None

PATIENT
  Age: 70 Year
  Sex: Female
  Weight: 69.3 kg

DRUGS (6)
  1. GLEOSTINE [Suspect]
     Active Substance: LOMUSTINE
     Indication: BRAIN NEOPLASM MALIGNANT
     Dosage: ?          OTHER FREQUENCY:EVERY 6 WEEKS;?
     Route: 048
  2. ONDANSETRON [Concomitant]
     Active Substance: ONDANSETRON
  3. LEVETIRACETAM. [Concomitant]
     Active Substance: LEVETIRACETAM
  4. GLEOSTINE [Suspect]
     Active Substance: LOMUSTINE
     Indication: BRAIN NEOPLASM MALIGNANT
     Dosage: ?          OTHER FREQUENCY:EVERY 6 WEEKS;?
     Route: 048
  5. XARELTO [Concomitant]
     Active Substance: RIVAROXABAN
  6. DEXAMETHASONE. [Concomitant]
     Active Substance: DEXAMETHASONE

REACTIONS (1)
  - Death [None]

NARRATIVE: CASE EVENT DATE: 20200424
